FAERS Safety Report 5905447-X (Version None)
Quarter: 2008Q4

REPORT INFORMATION
  Report Type: 
  Country: None (occurrence: None)
  Receive Date: 20081001
  Receipt Date: 20081001
  Transmission Date: 20090506
  Serious: Yes (Hospitalization)
  Sender: FDA-Public Use
  Company Number: None

PATIENT
  Sex: Female
  Weight: 60.3284 kg

DRUGS (6)
  1. RITUXAN [Suspect]
     Indication: NON-HODGKIN'S LYMPHOMA
     Dosage: 375 MG/M2 Q14DAYS IV
     Route: 042
     Dates: start: 20080805, end: 20080917
  2. CYCLOPHOSPHAMIDE [Suspect]
     Indication: NON-HODGKIN'S LYMPHOMA
     Dosage: 750 MG/M2 Q14DAYS IV
     Route: 042
     Dates: start: 20080806, end: 20080917
  3. DOXORUBICIN HCL [Suspect]
     Indication: NON-HODGKIN'S LYMPHOMA
     Dosage: 50MG/M2 Q14DAYS IV
     Route: 042
     Dates: start: 20080806, end: 20080917
  4. VINCRISTINE [Suspect]
     Indication: NON-HODGKIN'S LYMPHOMA
     Dosage: 1.4 MG/M2 Q14 DAYS IV
     Route: 042
     Dates: start: 20080806, end: 20080917
  5. PREDNISONE [Suspect]
     Indication: NON-HODGKIN'S LYMPHOMA
     Dosage: 100MG DAYS 1-5 PO
     Route: 048
     Dates: start: 20080805, end: 20080921
  6. PEGYLATED FILGRASTIM [Suspect]
     Indication: NON-HODGKIN'S LYMPHOMA
     Dosage: 6MG DAY 2 SUBQ.
     Route: 058
     Dates: start: 20080807, end: 20080918

REACTIONS (3)
  - DEEP VEIN THROMBOSIS [None]
  - HAEMOGLOBIN DECREASED [None]
  - PULMONARY HAEMORRHAGE [None]
